FAERS Safety Report 10160660 (Version 1)
Quarter: 2014Q2

REPORT INFORMATION
  Report Type: Spontaneous
  Country: US (occurrence: US)
  Receive Date: 20140508
  Receipt Date: 20140508
  Transmission Date: 20141212
  Serious: Yes (Other)
  Sender: FDA-Public Use
  Company Number: US-FRI-1000066953

PATIENT
  Age: 59 Year
  Sex: Female

DRUGS (8)
  1. VIIBRYD [Suspect]
     Indication: DEPRESSION
     Dosage: 20MG
     Route: 048
     Dates: start: 2011, end: 20140428
  2. ARIPIPRAZOLE [Suspect]
     Dosage: 10MG
  3. ARIPIPRAZOLE [Suspect]
     Dosage: 40MG
     Dates: start: 201404
  4. ASPIRIN [Concomitant]
     Dosage: 81MG (FREQUENCY UNKNOWN)
  5. METOPROLOL [Concomitant]
     Dosage: 100MG
  6. TRIAMTERENE [Concomitant]
     Dosage: 75MG (FREQUENCY UNKNOWN)
  7. HYDROCHLOROTHIAZIDE [Concomitant]
     Dosage: 50MG (FREQUENCY UNKNOWN)
  8. CLONAZEPAM [Concomitant]
     Indication: ANXIETY
     Dosage: 2MG

REACTIONS (3)
  - Cholecystitis [Unknown]
  - Arthralgia [Not Recovered/Not Resolved]
  - Pain in extremity [Not Recovered/Not Resolved]
